FAERS Safety Report 4311238-6 (Version None)
Quarter: 2004Q1

REPORT INFORMATION
  Report Type: 
  Country: None (occurrence: None)
  Receive Date: 20040302
  Receipt Date: 20040213
  Transmission Date: 20041129
  Serious: Yes (Hospitalization)
  Sender: FDA-Public Use
  Company Number: 701425

PATIENT
  Age: 47 Year
  Sex: Female

DRUGS (9)
  1. AMEVIVE [Suspect]
     Indication: PSORIASIS
     Dosage: 15 MG QW IM
     Route: 030
     Dates: start: 20031202, end: 20031215
  2. LISINOPRIL [Concomitant]
  3. EFFEXOR [Concomitant]
  4. SPIRONOLACTONE [Concomitant]
  5. LIPITOR [Concomitant]
  6. AVANDIA [Concomitant]
  7. HUMALOG [Concomitant]
  8. RELAFEN [Concomitant]
  9. LASIX [Concomitant]

REACTIONS (9)
  - ACUTE RESPIRATORY DISTRESS SYNDROME [None]
  - DEHYDRATION [None]
  - PNEUMONIA BACTERIAL [None]
  - PRURITUS [None]
  - RENAL FAILURE [None]
  - SPUTUM CULTURE POSITIVE [None]
  - STREPTOCOCCAL INFECTION [None]
  - SWELLING [None]
  - URTICARIA [None]
